FAERS Safety Report 5214092-3 (Version None)
Quarter: 2007Q1

REPORT INFORMATION
  Report Type: 
  Country: None (occurrence: None)
  Receive Date: 20070122
  Receipt Date: 20070111
  Transmission Date: 20070707
  Serious: Yes (Hospitalization)
  Sender: FDA-Public Use
  Company Number: PHNR2007AU00484

PATIENT
  Age: 18 Month
  Sex: Male

DRUGS (1)
  1. LOPRESSOR [Suspect]
     Dosage: ONE TABLET, ONCE/SINGLE
     Route: 048

REACTIONS (1)
  - ACCIDENTAL EXPOSURE [None]
